FAERS Safety Report 8377573-X (Version None)
Quarter: 2012Q2

REPORT INFORMATION
  Report Type: 
  Country: None (occurrence: None)
  Receive Date: 20120522
  Receipt Date: 20120516
  Transmission Date: 20120825
  Serious: Yes (Other)
  Sender: FDA-Public Use
  Company Number: US-PFIZER INC-2012106151

PATIENT

DRUGS (1)
  1. PREMARIN [Suspect]
     Dosage: UNK

REACTIONS (5)
  - ROAD TRAFFIC ACCIDENT [None]
  - CYSTITIS [None]
  - STRESS [None]
  - LIMB INJURY [None]
  - HOT FLUSH [None]
